FAERS Safety Report 9581819 (Version 9)
Quarter: 2016Q2

REPORT INFORMATION
  Report Type: Report from Study
  Country: ES (occurrence: ES)
  Receive Date: 20131002
  Receipt Date: 20160418
  Transmission Date: 20160815
  Serious: Yes (Hospitalization)
  Sender: FDA-Public Use
  Company Number: ES-ROCHE-1281478

PATIENT
  Age: 64 Year
  Sex: Female

DRUGS (26)
  1. TRANGOREX [Concomitant]
     Active Substance: AMIODARONE HYDROCHLORIDE
     Route: 065
     Dates: start: 20150313
  2. DEXAMETHASONE. [Concomitant]
     Active Substance: DEXAMETHASONE
     Route: 065
     Dates: start: 20130802
  3. PERTUZUMAB [Suspect]
     Active Substance: PERTUZUMAB
     Indication: HER-2 POSITIVE BREAST CANCER
     Dosage: LOADING DOSE AS PER PROTOCOL
     Route: 042
     Dates: start: 20130802, end: 20130802
  4. ADIRO [Concomitant]
     Active Substance: ASPIRIN
     Route: 065
     Dates: start: 2013
  5. TRASTUZUMAB [Suspect]
     Active Substance: TRASTUZUMAB
     Dosage: MOST RECENT DOSE ON 13/SEP/2013, MAINTENANCE DOSE  AS PER PROTOCOL, 3 WEEKS?DATE OF LAST DOSE PRIOR
     Route: 042
     Dates: start: 20130823
  6. DOCETAXEL. [Suspect]
     Active Substance: DOCETAXEL
     Indication: HER-2 POSITIVE BREAST CANCER
     Dosage: 3 WEEKS CYCLE, MOST RECENT DOSE ON 13/SEP/2013
     Route: 042
     Dates: start: 20130802
  7. ACETYLSALICYLIC ACID [Concomitant]
     Active Substance: ASPIRIN
     Indication: THROMBOSIS
     Route: 065
     Dates: start: 2013, end: 20131003
  8. LEVETIRACETAM. [Concomitant]
     Active Substance: LEVETIRACETAM
     Route: 065
     Dates: start: 20141226
  9. PERTUZUMAB [Suspect]
     Active Substance: PERTUZUMAB
     Dosage: 3 WEEKS, MAINTENANCE DOSE AS PER PROTOCOL, MOST RECENT DOSE ON 13/SEP/2013?DATE OF LAST DOSE PRIOR T
     Route: 042
     Dates: start: 20130823
  10. TRASTUZUMAB [Suspect]
     Active Substance: TRASTUZUMAB
     Indication: HER-2 POSITIVE BREAST CANCER
     Dosage: LOADING DOSE AS PER PROTOCOL
     Route: 042
     Dates: start: 20130802, end: 20130802
  11. CIPROFLOXACIN. [Concomitant]
     Active Substance: CIPROFLOXACIN
     Route: 065
     Dates: start: 20130918, end: 20130922
  12. ACETYLSALICYLIC ACID [Concomitant]
     Active Substance: ASPIRIN
     Route: 065
     Dates: start: 20141009
  13. RANITIDINE. [Concomitant]
     Active Substance: RANITIDINE
     Indication: PREMEDICATION
     Route: 065
     Dates: start: 20130802
  14. OMEPRAZOL [Concomitant]
     Active Substance: OMEPRAZOLE
     Route: 065
     Dates: start: 20141226, end: 20150306
  15. DEXCLORFENIRAMINA [Concomitant]
     Route: 065
     Dates: start: 20130802
  16. LEVOFLOXACIN. [Concomitant]
     Active Substance: LEVOFLOXACIN
     Route: 065
     Dates: start: 20141128, end: 20141219
  17. AUGMENTIN [Concomitant]
     Active Substance: AMOXICILLIN\CLAVULANATE POTASSIUM
     Route: 065
     Dates: start: 20131017, end: 20131024
  18. BUSCAPINE [Concomitant]
     Active Substance: BUTYLSCOPOLAMINE
     Dosage: PRN
     Route: 065
     Dates: start: 20130918, end: 20130923
  19. HIDROFEROL [Concomitant]
     Active Substance: CALCIFEDIOL
     Route: 065
     Dates: start: 20150424
  20. ENALAPRIL [Concomitant]
     Active Substance: ENALAPRIL
     Route: 065
     Dates: start: 2013
  21. ENALAPRIL [Concomitant]
     Active Substance: ENALAPRIL
     Route: 065
     Dates: start: 20141226
  22. HYDROCHLOROTHIAZIDE. [Concomitant]
     Active Substance: HYDROCHLOROTHIAZIDE
     Route: 065
     Dates: start: 2013, end: 20141008
  23. MONUROL [Concomitant]
     Active Substance: FOSFOMYCIN TROMETHAMINE
     Dosage: 1/3 G DAILY
     Route: 065
     Dates: start: 20141207, end: 20141209
  24. LEVETIRACETAM. [Concomitant]
     Active Substance: LEVETIRACETAM
     Dosage: 1000 MG/12 HOUR
     Route: 065
     Dates: start: 2013
  25. LEVOFLOXACIN. [Concomitant]
     Active Substance: LEVOFLOXACIN
     Route: 065
     Dates: start: 20131016, end: 20131023
  26. FOSFOMYCIN [Concomitant]
     Active Substance: FOSFOMYCIN
     Route: 065
     Dates: start: 20141107, end: 20141108

REACTIONS (1)
  - Atrial fibrillation [Recovered/Resolved]

NARRATIVE: CASE EVENT DATE: 20130923
